FAERS Safety Report 5505650-7 (Version None)
Quarter: 2007Q4

REPORT INFORMATION
  Report Type: 
  Country: None (occurrence: None)
  Receive Date: 20071102
  Receipt Date: 20071022
  Transmission Date: 20080405
  Serious: Yes (Death, Other)
  Sender: FDA-Public Use
  Company Number: US-PFIZER INC-2007074758

PATIENT
  Age: 34 Year
  Sex: Male

DRUGS (1)
  1. CHANTIX [Suspect]
     Indication: SMOKING CESSATION THERAPY

REACTIONS (6)
  - ABNORMAL DREAMS [None]
  - AGGRESSION [None]
  - HALLUCINATION [None]
  - NIGHTMARE [None]
  - PHYSICAL ASSAULT [None]
  - POLYDIPSIA [None]
